FAERS Safety Report 6171537-2 (Version None)
Quarter: 2009Q2

REPORT INFORMATION
  Report Type: 
  Country: None (occurrence: None)
  Receive Date: 20090429
  Receipt Date: 20090417
  Transmission Date: 20091009
  Serious: Yes (Other)
  Sender: FDA-Public Use
  Company Number: US-PFIZER INC-2009178093

PATIENT
  Sex: Male
  Weight: 96.599 kg

DRUGS (13)
  1. LYRICA [Suspect]
     Indication: NEURALGIA
     Dates: start: 20080801
  2. SYNTHROID [Concomitant]
     Dosage: 25 MCG
  3. DIOVAN [Concomitant]
     Dosage: 80 MG, UNK
  4. METOPROLOL TARTRATE [Concomitant]
     Dosage: UNK
  5. LIPITOR [Concomitant]
     Indication: BLOOD CHOLESTEROL INCREASED
     Dosage: UNK
  6. OXYCONTIN [Concomitant]
     Dosage: UNK
  7. PERCODAN-DEMI [Concomitant]
     Dosage: UNK
  8. LEVOTHYROXINE SODIUM [Concomitant]
     Indication: HYPERTHYROIDISM
     Dosage: 25 MG, 1X/DAY
  9. PERCOCET [Concomitant]
     Dosage: UNK
  10. ENDOCET [Concomitant]
     Dosage: UNK
  11. LEVOTHYROXINE [Concomitant]
     Dosage: UNK
  12. ULTRACET [Concomitant]
     Dosage: UNK
     Dates: start: 20090108
  13. AMITRIPTYLINE [Concomitant]
     Dosage: 25 MG, AT BEDTIME

REACTIONS (9)
  - ARTHRALGIA [None]
  - BACK PAIN [None]
  - CHEST PAIN [None]
  - HEADACHE [None]
  - MUSCULAR WEAKNESS [None]
  - MUSCULOSKELETAL PAIN [None]
  - NECK PAIN [None]
  - PAIN IN EXTREMITY [None]
  - SLEEP DISORDER [None]
